FAERS Safety Report 8539847-9 (Version None)
Quarter: 2012Q3

REPORT INFORMATION
  Report Type: 
  Country: None (occurrence: None)
  Receive Date: 20120726
  Receipt Date: 20120719
  Transmission Date: 20120928
  Serious: Yes (Death, Hospitalization)
  Sender: FDA-Public Use
  Company Number: GB-UCBSA-062311

PATIENT
  Age: 64 Year
  Sex: Female
  Weight: 47.5 kg

DRUGS (8)
  1. CIMZIA [Suspect]
     Indication: RHEUMATOID ARTHRITIS
     Route: 058
     Dates: start: 20110510, end: 20120501
  2. AMITRIPTYLINE HYDROCHLORIDE [Concomitant]
  3. ORAMORPH SR [Concomitant]
  4. AZITHROMYCIN [Concomitant]
  5. SALMETEROL [Concomitant]
  6. RANITIDINE [Concomitant]
  7. PREDNISOLONE [Concomitant]
  8. TIOTROPIUM [Concomitant]

REACTIONS (5)
  - ABDOMINAL PAIN [None]
  - INTESTINAL PERFORATION [None]
  - PERITONITIS [None]
  - DIVERTICULUM [None]
  - MULTI-ORGAN FAILURE [None]
